FAERS Safety Report 18055344 (Version 3)
Quarter: 2024Q1

REPORT INFORMATION
  Report Type: Spontaneous
  Country: US (occurrence: US)
  Receive Date: 20200722
  Receipt Date: 20240214
  Transmission Date: 20240409
  Serious: Yes (Hospitalization, Other)
  Sender: FDA-Public Use
  Company Number: US-GILEAD-2020-0484353

PATIENT
  Age: 52 Year
  Sex: Male
  Weight: 71.202 kg

DRUGS (51)
  1. TRUVADA [Suspect]
     Active Substance: EMTRICITABINE\TENOFOVIR DISOPROXIL FUMARATE
     Indication: HIV infection
     Dosage: UNK
     Route: 048
     Dates: start: 2004, end: 201111
  2. EMTRIVA [Concomitant]
     Active Substance: EMTRICITABINE
  3. VITAMIN D3 [Concomitant]
     Active Substance: CHOLECALCIFEROL
  4. PHOSLO [Concomitant]
     Active Substance: CALCIUM ACETATE
  5. INTELENCE [Concomitant]
     Active Substance: ETRAVIRINE
  6. ISENTRESS [Concomitant]
     Active Substance: RALTEGRAVIR POTASSIUM
  7. KALETRA [Concomitant]
     Active Substance: LOPINAVIR\RITONAVIR
  8. NORVIR [Concomitant]
     Active Substance: RITONAVIR
  9. PIFELTRO [Concomitant]
     Active Substance: DORAVIRINE
  10. PREZCOBIX [Concomitant]
     Active Substance: COBICISTAT\DARUNAVIR ETHANOLATE
  11. PREZISTA [Concomitant]
     Active Substance: DARUNAVIR ETHANOLATE
  12. TIVICAY [Concomitant]
     Active Substance: DOLUTEGRAVIR SODIUM
  13. TYBOST [Concomitant]
     Active Substance: COBICISTAT
  14. NAPROXEN [Concomitant]
     Active Substance: NAPROXEN
  15. ATORVASTATIN [Concomitant]
     Active Substance: ATORVASTATIN
  16. TRAZODONE [Concomitant]
     Active Substance: TRAZODONE HYDROCHLORIDE
  17. ZOLPIDEM [Concomitant]
     Active Substance: ZOLPIDEM TARTRATE
  18. HYDROCODONE [Concomitant]
     Active Substance: HYDROCODONE
  19. AMBIEN [Concomitant]
     Active Substance: ZOLPIDEM TARTRATE
  20. TIZANIDINE [Concomitant]
     Active Substance: TIZANIDINE
  21. ONDANSETRON [Concomitant]
     Active Substance: ONDANSETRON
  22. PROVENTIL [Concomitant]
     Active Substance: ALBUTEROL
  23. AZITHROMYCIN [Concomitant]
     Active Substance: AZITHROMYCIN
  24. PROMETHAZINE [Concomitant]
     Active Substance: PROMETHAZINE HYDROCHLORIDE
  25. OXYCODONE [Concomitant]
     Active Substance: OXYCODONE\OXYCODONE HYDROCHLORIDE
  26. CYCLOBENZAPRINE [Concomitant]
     Active Substance: CYCLOBENZAPRINE
  27. VIAGRA [Concomitant]
     Active Substance: SILDENAFIL CITRATE
  28. CEPHALEXIN [Concomitant]
     Active Substance: CEPHALEXIN
  29. ESCITALOPRAM [Concomitant]
     Active Substance: ESCITALOPRAM OXALATE
  30. SUMATRIPTAN [Concomitant]
     Active Substance: SUMATRIPTAN
  31. RIZATRIPTAN [Concomitant]
     Active Substance: RIZATRIPTAN
  32. LISINOPRIL [Concomitant]
     Active Substance: LISINOPRIL
  33. LOSARTAN [Concomitant]
     Active Substance: LOSARTAN
  34. FROVA [Concomitant]
     Active Substance: FROVATRIPTAN SUCCINATE
  35. PROCHLORPERAZINE [Concomitant]
     Active Substance: PROCHLORPERAZINE
  36. DIAZEPAM [Concomitant]
     Active Substance: DIAZEPAM
  37. GABAPENTIN [Concomitant]
     Active Substance: GABAPENTIN
  38. OMEPRAZOLE [Concomitant]
     Active Substance: OMEPRAZOLE
  39. AMOXICILLIN [Concomitant]
     Active Substance: AMOXICILLIN
  40. PENICILLIN V POTASSIUM [Concomitant]
     Active Substance: PENICILLIN V POTASSIUM
  41. BELSOMRA [Concomitant]
     Active Substance: SUVOREXANT
  42. PREDNISONE [Concomitant]
     Active Substance: PREDNISONE
  43. NITROSTAT [Concomitant]
     Active Substance: NITROGLYCERIN
  44. LYRICA [Concomitant]
     Active Substance: PREGABALIN
  45. BENZONATATE [Concomitant]
     Active Substance: BENZONATATE
  46. TERBINAFINE [Concomitant]
     Active Substance: TERBINAFINE
  47. HYDROCHLOROTHIAZIDE\LOSARTAN [Concomitant]
     Active Substance: HYDROCHLOROTHIAZIDE\LOSARTAN
  48. EGRIFTA [Concomitant]
     Active Substance: TESAMORELIN ACETATE
  49. DEXAMETHASONE [Concomitant]
     Active Substance: DEXAMETHASONE
  50. ECOTRIN [Concomitant]
     Active Substance: ASPIRIN
  51. LUNESTA [Concomitant]
     Active Substance: ESZOPICLONE

REACTIONS (8)
  - Chronic kidney disease [Not Recovered/Not Resolved]
  - Renal failure [Recovered/Resolved]
  - Acute kidney injury [Recovered/Resolved]
  - Renal tubular necrosis [Not Recovered/Not Resolved]
  - End stage renal disease [Not Recovered/Not Resolved]
  - Pain [Not Recovered/Not Resolved]
  - Anxiety [Not Recovered/Not Resolved]
  - Emotional distress [Not Recovered/Not Resolved]

NARRATIVE: CASE EVENT DATE: 20111031
